FAERS Safety Report 22656307 (Version 2)
Quarter: 2023Q2

REPORT INFORMATION
  Report Type: Report from Study
  Country: CN (occurrence: None)
  Receive Date: 20230629
  Receipt Date: 20230630
  Transmission Date: 20230721
  Serious: Yes (Hospitalization)
  Sender: FDA-Public Use
  Company Number: 2023A134415

PATIENT
  Age: 789 Month
  Sex: Female

DRUGS (8)
  1. DURVALUMAB [Suspect]
     Active Substance: DURVALUMAB
     Indication: Non-small cell lung cancer
     Route: 042
     Dates: start: 20230508, end: 20230508
  2. SAVOLITINIB [Suspect]
     Active Substance: SAVOLITINIB
     Indication: Non-small cell lung cancer
     Route: 042
     Dates: start: 20230508, end: 20230508
  3. ACARBOSE [Concomitant]
     Active Substance: ACARBOSE
     Route: 048
     Dates: start: 2021
  4. PIOGLITAZONE  METFORMIN [Concomitant]
     Route: 048
     Dates: start: 2021
  5. COMPOUND CODEINE PHOSPHATE AND IBUPROFEN SUSTAINED RELEASE TABLET [Concomitant]
     Route: 048
     Dates: start: 20230504
  6. DAPAGLIFLOZIN [Concomitant]
     Active Substance: DAPAGLIFLOZIN
     Route: 048
     Dates: start: 20230413
  7. COUMPOUND GLYCYRRHIZA ORAL SOLUTION [Concomitant]
     Route: 048
     Dates: start: 20230504
  8. YUNNAN BAIYAO CAPSULE [Concomitant]
     Route: 048
     Dates: start: 20230413

REACTIONS (1)
  - Drug-induced liver injury [Not Recovered/Not Resolved]

NARRATIVE: CASE EVENT DATE: 20230605
